FAERS Safety Report 16370993 (Version 3)
Quarter: 2019Q2

REPORT INFORMATION
  Report Type: Spontaneous
  Country: BR (occurrence: BR)
  Receive Date: 20190530
  Receipt Date: 20190628
  Transmission Date: 20190711
  Serious: Yes (Hospitalization, Other)
  Sender: FDA-Public Use
  Company Number: BR-009507513-1905BRA011586

PATIENT
  Age: 24 Year
  Sex: Male

DRUGS (1)
  1. KEYTRUDA [Suspect]
     Active Substance: PEMBROLIZUMAB
     Indication: METASTATIC MALIGNANT MELANOMA
     Dosage: UNK
     Dates: start: 2019

REACTIONS (6)
  - Marrow hyperplasia [Unknown]
  - Leukocytosis [Not Recovered/Not Resolved]
  - Pseudomonas infection [Unknown]
  - Secretion discharge [Unknown]
  - Pyrexia [Unknown]
  - Leukaemoid reaction [Unknown]

NARRATIVE: CASE EVENT DATE: 2019
